FAERS Safety Report 8888387 (Version 1)
Quarter: 2012Q4

REPORT INFORMATION
  Report Type: 
  Country: CN (occurrence: CN)
  Receive Date: 20121106
  Receipt Date: 20121106
  Transmission Date: 20130627
  Serious: Yes (Other)
  Sender: FDA-Public Use
  Company Number: CN-JNJFOC-20121012985

PATIENT

DRUGS (4)
  1. XARELTO [Suspect]
     Indication: THROMBOSIS PROPHYLAXIS
     Route: 048
     Dates: start: 20120714, end: 20120716
  2. XARELTO [Suspect]
     Indication: KNEE ARTHROPLASTY
     Route: 048
     Dates: start: 20120714, end: 20120716
  3. DICLOFENAC SODIUM [Concomitant]
     Route: 065
  4. CEFAMANDOLE [Concomitant]

REACTIONS (3)
  - Incision site haemorrhage [Unknown]
  - Post procedural discharge [Unknown]
  - Swelling [Recovered/Resolved]
